FAERS Safety Report 7655454-4 (Version None)
Quarter: 2011Q3

REPORT INFORMATION
  Report Type: 
  Country: None (occurrence: None)
  Receive Date: 20110804
  Receipt Date: 20110628
  Transmission Date: 20111222
  Serious: No
  Sender: FDA-Public Use
  Company Number: US-PFIZER INC-2011141227

PATIENT
  Sex: Female
  Weight: 72.562 kg

DRUGS (1)
  1. ADVIL PM [Suspect]
     Indication: SLEEP DISORDER
     Dosage: UNK, ONCE A DAY
     Route: 048
     Dates: start: 20110604, end: 20110607

REACTIONS (1)
  - DRUG INEFFECTIVE [None]
